FAERS Safety Report 23595873 (Version 1)
Quarter: 2024Q1

REPORT INFORMATION
  Report Type: Report from Study
  Country: US (occurrence: US)
  Receive Date: 20240305
  Receipt Date: 20240305
  Transmission Date: 20240410
  Serious: Yes (Other)
  Sender: FDA-Public Use
  Company Number: US-ABBVIE-5662123

PATIENT
  Sex: Male

DRUGS (1)
  1. RINVOQ [Suspect]
     Active Substance: UPADACITINIB
     Indication: Rheumatoid arthritis
     Route: 048
     Dates: start: 20221209

REACTIONS (7)
  - Shoulder operation [Recovered/Resolved]
  - Migraine [Recovering/Resolving]
  - Joint effusion [Recovered/Resolved]
  - Foot operation [Recovering/Resolving]
  - Pain [Unknown]
  - Peripheral swelling [Unknown]
  - Peripheral swelling [Unknown]
